FAERS Safety Report 18432407 (Version 1)
Quarter: 2020Q4

REPORT INFORMATION
  Report Type: Report from Study
  Country: CA (occurrence: CA)
  Receive Date: 20201027
  Receipt Date: 20201027
  Transmission Date: 20210114
  Serious: Yes (Other)
  Sender: FDA-Public Use
  Company Number: CA-VIFOR (INTERNATIONAL) INC.-VIT-2020-08248

PATIENT
  Age: 60 Year
  Sex: Male
  Weight: 60.1 kg

DRUGS (2)
  1. VELPHORO [Suspect]
     Active Substance: SUCROFERRIC OXYHYDROXIDE
     Indication: PRODUCT USED FOR UNKNOWN INDICATION
     Route: 048
  2. KEYTRUDA [Suspect]
     Active Substance: PEMBROLIZUMAB
     Indication: RENAL CELL CARCINOMA
     Route: 041
     Dates: start: 20200212, end: 20200318

REACTIONS (6)
  - Dialysis [Unknown]
  - Faeces discoloured [Unknown]
  - Anger [Unknown]
  - Blood pressure abnormal [Unknown]
  - Coccydynia [Unknown]
  - Rash [Unknown]

NARRATIVE: CASE EVENT DATE: 2020
